FAERS Safety Report 21983631 (Version 1)
Quarter: 2023Q1

REPORT INFORMATION
  Report Type: Spontaneous
  Country: US (occurrence: None)
  Receive Date: 20230213
  Receipt Date: 20230213
  Transmission Date: 20230418
  Serious: Yes (Other)
  Sender: FDA-Public Use
  Company Number: 2023A034212

PATIENT
  Sex: Female
  Weight: 105.7 kg

DRUGS (1)
  1. FARXIGA [Suspect]
     Active Substance: DAPAGLIFLOZIN PROPANEDIOL
     Indication: Renal disorder
     Route: 048

REACTIONS (4)
  - Pollakiuria [Unknown]
  - Renal disorder [Unknown]
  - General physical health deterioration [Unknown]
  - Diabetes mellitus [Unknown]
